FAERS Safety Report 8921132 (Version 3)
Quarter: 2012Q4

REPORT INFORMATION
  Report Type: 
  Country: JP (occurrence: JP)
  Receive Date: 20121122
  Receipt Date: 20121214
  Transmission Date: 20130627
  Serious: Yes (Hospitalization, Other)
  Sender: FDA-Public Use
  Company Number: JP-009507513-1211JPN007020

PATIENT
  Age: 88 Year
  Sex: Female

DRUGS (6)
  1. BONALON [Suspect]
     Indication: OSTEOPOROSIS
     Dosage: 5 mg, qd
     Route: 048
     Dates: start: 2003
  2. BONALON [Suspect]
     Indication: OSTEOPOROSIS
     Dosage: 35 mg, qw
     Route: 048
     Dates: end: 2011
  3. FORTEO [Concomitant]
     Indication: OSTEOPOROSIS
     Dosage: 20 microgram/day
     Route: 058
     Dates: start: 2011
  4. MENATETRENONE [Concomitant]
     Indication: OSTEOPOROSIS
     Route: 048
  5. LIMAPROST ALFADEX [Concomitant]
     Indication: LUMBAR SPINAL STENOSIS
  6. VITAMINS (UNSPECIFIED) [Concomitant]
     Indication: OSTEOPOROSIS
     Dosage: UNK

REACTIONS (2)
  - Atypical femur fracture [Unknown]
  - Femur fracture [Recovering/Resolving]
